FAERS Safety Report 10677130 (Version 7)
Quarter: 2015Q2

REPORT INFORMATION
  Report Type: Report from Study
  Country: US (occurrence: US)
  Receive Date: 20141226
  Receipt Date: 20150417
  Transmission Date: 20150821
  Serious: Yes (Hospitalization)
  Sender: FDA-Public Use
  Company Number: US-AMGEN-2014-1768

PATIENT
  Age: 77 Year
  Sex: Male
  Weight: 74.6 kg

DRUGS (20)
  1. LEVOFLOXACIN. [Concomitant]
     Active Substance: LEVOFLOXACIN
     Indication: PROPHYLAXIS
     Dosage: 750 MG, QD
     Route: 048
     Dates: start: 20140626, end: 201407
  2. HYDROCODONE [Concomitant]
     Active Substance: HYDROCODONE
     Indication: PAIN
     Dosage: 7.5 MG, QID
     Route: 048
     Dates: start: 20140626
  3. ZOVIRAX [Concomitant]
     Active Substance: ACYCLOVIR
     Indication: ANTIVIRAL TREATMENT
     Route: 048
     Dates: start: 20140523
  4. ADVIL [Concomitant]
     Active Substance: IBUPROFEN
     Indication: BACK PAIN
     Route: 048
     Dates: start: 20140717
  5. CARBAMOL [Concomitant]
     Indication: PAIN
     Dosage: 500 MG, TID
     Route: 048
     Dates: start: 20140626
  6. YOUNGEVITY [Concomitant]
     Indication: PROPHYLAXIS
     Route: 048
     Dates: start: 201401
  7. ZOFRAN [Concomitant]
     Active Substance: ONDANSETRON HYDROCHLORIDE
     Indication: NAUSEA
     Route: 048
     Dates: start: 20140715, end: 20140715
  8. ZOFRAN [Concomitant]
     Active Substance: ONDANSETRON HYDROCHLORIDE
     Route: 048
     Dates: start: 20140717, end: 20140717
  9. ZOMETA [Concomitant]
     Active Substance: ZOLEDRONIC ACID
     Indication: NAUSEA
     Route: 048
     Dates: start: 20140717, end: 20140717
  10. CARFILZOMIB [Suspect]
     Active Substance: CARFILZOMIB
     Dosage: FREQUENCY: 4 EVERY 28 DAYS; FREQ. TEXT: DAYS 8, 9, 15, 16
     Route: 042
     Dates: start: 20140717, end: 20140725
  11. CARFILZOMIB [Suspect]
     Active Substance: CARFILZOMIB
     Dosage: FREQUENCY: 6 EVERY 28 DAYS; FREQ. TEXT: DAYS 1, 2, 8, 9, 15, 16EVERY 28 DAYS
     Route: 042
     Dates: start: 20140807
  12. RIBAVIRIN. [Concomitant]
     Active Substance: RIBAVIRIN
     Indication: PROPHYLAXIS
     Dosage: 600 MG, BID
     Route: 048
     Dates: start: 20140626, end: 201407
  13. NORVASC [Concomitant]
     Active Substance: AMLODIPINE BESYLATE
     Indication: HYPERTENSION
     Route: 048
     Dates: start: 20140414, end: 20140711
  14. CALCIUM [Concomitant]
     Active Substance: CALCIUM
     Indication: HYPOCALCAEMIA
     Dosage: 500 MG, QD
     Route: 048
     Dates: start: 201401
  15. ZOFRAN [Concomitant]
     Active Substance: ONDANSETRON HYDROCHLORIDE
     Route: 048
     Dates: start: 20140723, end: 20140723
  16. CARFILZOMIB [Suspect]
     Active Substance: CARFILZOMIB
     Indication: PLASMA CELL MYELOMA
     Dosage: FREQ. TEXT: DAYS 1, 2
     Route: 042
     Dates: start: 20140710, end: 20140711
  17. DEXAMETHASONE. [Concomitant]
     Active Substance: DEXAMETHASONE
     Indication: PLASMA CELL MYELOMA
     Dosage: FREQUENCY: 6 EVERY 28 DAYS; FREQ. TEXT: DAYS 1, 2, 8, 9, 15, 16 EVERY 28 DAYS
     Dates: start: 20140710, end: 20140725
  18. POTASSIUM CL [Concomitant]
     Active Substance: POTASSIUM CHLORIDE
     Route: 048
     Dates: start: 20140711
  19. LISINOPRIL. [Concomitant]
     Active Substance: LISINOPRIL
     Indication: HYPERTENSION
     Dosage: UNK MG, UNK
     Route: 048
     Dates: start: 2003
  20. POTASSIUM CL [Concomitant]
     Active Substance: POTASSIUM CHLORIDE
     Indication: HYPOKALAEMIA
     Dosage: 20 UNK, UNK
     Route: 048
     Dates: start: 20140108, end: 20140711

REACTIONS (2)
  - Acute interstitial pneumonitis [Not Recovered/Not Resolved]
  - Acute kidney injury [Not Recovered/Not Resolved]

NARRATIVE: CASE EVENT DATE: 20140811
